FAERS Safety Report 4410919-3 (Version None)
Quarter: 2004Q3

REPORT INFORMATION
  Report Type: 
  Country: None (occurrence: None)
  Receive Date: 20040728
  Receipt Date: 20040728
  Transmission Date: 20050211
  Serious: Yes (Disabling)
  Sender: FDA-Public Use
  Company Number: None

PATIENT
  Sex: Male
  Weight: 81.6475 kg

DRUGS (1)
  1. ALL IN ONE CONTACT SOLUTION EQUATE [Suspect]
     Dates: start: 20040713, end: 20040725

REACTIONS (6)
  - APPLICATION SITE REACTION [None]
  - EYE IRRITATION [None]
  - EYE REDNESS [None]
  - EYE SWELLING [None]
  - HYPERSENSITIVITY [None]
  - PHARMACEUTICAL PRODUCT COMPLAINT [None]
